FAERS Safety Report 7026615-2 (Version None)
Quarter: 2010Q3

REPORT INFORMATION
  Report Type: 
  Country: None (occurrence: None)
  Receive Date: 20100930
  Receipt Date: 20100908
  Transmission Date: 20110219
  Serious: Yes (Other)
  Sender: FDA-Public Use
  Company Number: LEO-2010-00824

PATIENT
  Age: 36 Year
  Sex: Female
  Weight: 51 kg

DRUGS (1)
  1. INNOHEP [Suspect]
     Indication: PULMONARY EMBOLISM
     Dosage: (8900 IU),SUBCUTANEOUS
     Route: 058
     Dates: start: 20100512, end: 20100512

REACTIONS (3)
  - HYPERSENSITIVITY [None]
  - LIP SWELLING [None]
  - SWOLLEN TONGUE [None]
